FAERS Safety Report 10620333 (Version 1)
Quarter: 2014Q4

REPORT INFORMATION
  Report Type: Spontaneous
  Country: GB (occurrence: GB)
  Receive Date: 20141202
  Receipt Date: 20141202
  Transmission Date: 20150529
  Serious: Yes (Hospitalization)
  Sender: FDA-Public Use
  Company Number: GB-BAYER-2014-174507

PATIENT
  Age: 83 Year
  Sex: Male

DRUGS (15)
  1. LANSOPRAZOLE. [Concomitant]
     Active Substance: LANSOPRAZOLE
  2. ROSUVASTATIN [Concomitant]
     Active Substance: ROSUVASTATIN
  3. SPIRONOLACTONE. [Concomitant]
     Active Substance: SPIRONOLACTONE
  4. BISOPROLOL [Concomitant]
     Active Substance: BISOPROLOL
  5. ISOSORBIDE MONONITRATE. [Concomitant]
     Active Substance: ISOSORBIDE MONONITRATE
  6. SENNA [Concomitant]
     Active Substance: SENNA LEAF\SENNOSIDES\SENNOSIDES A AND B
  7. E45 [Concomitant]
  8. MACROGOL [Concomitant]
     Active Substance: POLYETHYLENE GLYCOLS
  9. ACETYLSALICYLIC ACID (} 100 MG) [Suspect]
     Active Substance: ASPIRIN
     Dosage: UNK
  10. FUROSEMIDE. [Concomitant]
     Active Substance: FUROSEMIDE
  11. AMLODIPINE [Concomitant]
     Active Substance: AMLODIPINE BESYLATE
  12. BENDROFLUMETHIAZIDE [Concomitant]
     Active Substance: BENDROFLUMETHIAZIDE
  13. FINASTERIDE. [Concomitant]
     Active Substance: FINASTERIDE
  14. TAMSULOSIN [Concomitant]
     Active Substance: TAMSULOSIN
  15. WARFARIN [Suspect]
     Active Substance: WARFARIN
     Indication: ATRIAL FIBRILLATION

REACTIONS (3)
  - International normalised ratio increased [Unknown]
  - Upper gastrointestinal haemorrhage [Recovering/Resolving]
  - Haematemesis [Recovered/Resolved]
